FAERS Safety Report 5755832-4 (Version None)
Quarter: 2008Q2

REPORT INFORMATION
  Report Type: 
  Country: None (occurrence: None)
  Receive Date: 20080528
  Receipt Date: 20080516
  Transmission Date: 20081010
  Serious: Yes (Other)
  Sender: FDA-Public Use
  Company Number: THQ2008A00735

PATIENT
  Age: 85 Year
  Sex: Male

DRUGS (3)
  1. LEUPROLIDE ACETATE [Suspect]
     Indication: PROSTATE CANCER
     Dosage: 11.25 MG (11.25 MG, 1 IN 3 M) INTRAMUSCULAR
     Route: 030
     Dates: start: 20070422, end: 20070913
  2. LEUPROLIDE ACETATE [Suspect]
     Indication: PROSTATIC ADENOMA
     Dosage: 3.75 MG (3.75 MG, 1 IN 1 M) INJECTION
  3. FLUTAMIDE [Concomitant]

REACTIONS (12)
  - ARTHRALGIA [None]
  - ASTHENIA [None]
  - BONE PAIN [None]
  - BREAST MASS [None]
  - BREAST PAIN [None]
  - DEPRESSION [None]
  - GYNAECOMASTIA [None]
  - HYPERHIDROSIS [None]
  - INTERVERTEBRAL DISC DEGENERATION [None]
  - MALIGNANT MELANOMA [None]
  - OSTEOARTHRITIS [None]
  - WEIGHT INCREASED [None]
